FAERS Safety Report 4311260-X (Version None)
Quarter: 2004Q1

REPORT INFORMATION
  Report Type: 
  Country: None (occurrence: None)
  Receive Date: 20040304
  Receipt Date: 20040223
  Transmission Date: 20041129
  Serious: Yes (Hospitalization, Other)
  Sender: FDA-Public Use
  Company Number: WAES 0402USA01724

PATIENT
  Age: 77 Year
  Sex: Female

DRUGS (8)
  1. VICODIN [Concomitant]
     Dates: start: 19991013
  2. SOMA [Concomitant]
     Indication: MUSCLE SPASMS
     Dates: start: 19991013
  3. SOMA [Concomitant]
     Dates: start: 19991013
  4. PREMARIN [Concomitant]
     Indication: HORMONE REPLACEMENT THERAPY
     Dates: start: 19550101
  5. ALLEGRA [Concomitant]
     Dates: start: 19991013
  6. LEVOXYL [Concomitant]
     Indication: HYPOTHYROIDISM
  7. CLARITIN [Concomitant]
     Dates: start: 19991013
  8. VIOXX [Suspect]
     Indication: PROPHYLAXIS
     Dates: start: 19991001

REACTIONS (11)
  - ARTHRITIS [None]
  - ARTHROPATHY [None]
  - BLOOD PRESSURE INCREASED [None]
  - CORONARY ARTERY DISEASE [None]
  - CORONARY ARTERY STENOSIS [None]
  - DRUG DEPENDENCE [None]
  - DYSPNOEA [None]
  - FATIGUE [None]
  - HEADACHE [None]
  - MYOCARDIAL INFARCTION [None]
  - POST PROCEDURAL HAEMORRHAGE [None]
